FAERS Safety Report 6930602-X (Version None)
Quarter: 2010Q3

REPORT INFORMATION
  Report Type: 
  Country: None (occurrence: None)
  Receive Date: 20100818
  Receipt Date: 20100816
  Transmission Date: 20110219
  Serious: Yes (Other)
  Sender: FDA-Public Use
  Company Number: GB-AMGEN-KDC425820

PATIENT
  Sex: Female
  Weight: 53 kg

DRUGS (6)
  1. ROMIPLOSTIM [Suspect]
     Indication: IDIOPATHIC THROMBOCYTOPENIC PURPURA
     Route: 058
     Dates: start: 20090921
  2. PENICILLIN V [Concomitant]
  3. LISINOPRIL [Concomitant]
  4. ACYCLOVIR [Concomitant]
  5. ALENDRONIC ACID [Concomitant]
  6. VITAMIN B-12 [Concomitant]

REACTIONS (1)
  - DEEP VEIN THROMBOSIS [None]
